FAERS Safety Report 10344545 (Version 2)
Quarter: 2014Q3

REPORT INFORMATION
  Report Type: Spontaneous
  Country: HK (occurrence: HK)
  Receive Date: 20140728
  Receipt Date: 20140730
  Transmission Date: 20150326
  Serious: Yes (Death)
  Sender: FDA-Public Use
  Company Number: HK-MERCK-1407HKG011151

PATIENT
  Age: 70 Year
  Sex: Female

DRUGS (3)
  1. NOXAFIL [Suspect]
     Active Substance: POSACONAZOLE
     Indication: SYSTEMIC MYCOSIS
     Dosage: UNK
     Route: 042
     Dates: start: 20140714, end: 201407
  2. AMBISOME [Concomitant]
     Active Substance: AMPHOTERICIN B
     Indication: PENICILLIOSIS
     Dosage: 150 MG, QD
     Route: 042
     Dates: start: 20140627, end: 20140721
  3. ANIDULAFUNGIN [Concomitant]
     Active Substance: ANIDULAFUNGIN
     Indication: PENICILLIOSIS
     Dosage: 100 MG, QD
     Route: 042
     Dates: start: 20140628, end: 20140721

REACTIONS (1)
  - Death [Fatal]

NARRATIVE: CASE EVENT DATE: 20140722
